FAERS Safety Report 6151946-8 (Version None)
Quarter: 2009Q2

REPORT INFORMATION
  Report Type: 
  Country: None (occurrence: None)
  Receive Date: 20090410
  Receipt Date: 20090406
  Transmission Date: 20091009
  Serious: Yes (Other)
  Sender: FDA-Public Use
  Company Number: US-AMGEN-QUU341675

PATIENT
  Sex: Male

DRUGS (4)
  1. ARANESP [Suspect]
     Indication: MYELODYSPLASTIC SYNDROME
  2. LISINOPRIL [Concomitant]
  3. PROCARDIA [Concomitant]
  4. LOPRESSOR [Concomitant]

REACTIONS (4)
  - BLOOD PRESSURE DECREASED [None]
  - DIZZINESS [None]
  - EXERCISE TOLERANCE DECREASED [None]
  - THERAPEUTIC RESPONSE DECREASED [None]
